FAERS Safety Report 4990449-0 (Version None)
Quarter: 2006Q2

REPORT INFORMATION
  Report Type: 
  Country: None (occurrence: None)
  Receive Date: 20060501
  Receipt Date: 20060501
  Transmission Date: 20061013
  Serious: No
  Sender: FDA-Public Use
  Company Number: None

PATIENT
  Age: 78 Year
  Sex: Female

DRUGS (1)
  1. MIACALCIN [Suspect]
     Indication: OSTEOPOROSIS
     Dosage: ONE SPRAY IN NOSTRIL DAILY
     Route: 045
     Dates: start: 20060421

REACTIONS (1)
  - DEVICE FAILURE [None]
